FAERS Safety Report 23491550 (Version 2)
Quarter: 2024Q1

REPORT INFORMATION
  Report Type: Spontaneous
  Country: CA (occurrence: CA)
  Receive Date: 20240207
  Receipt Date: 20240301
  Transmission Date: 20240409
  Serious: Yes (Other)
  Sender: FDA-Public Use
  Company Number: CA-PFIZER INC-202400031156

PATIENT

DRUGS (1)
  1. ADALIMUMAB [Suspect]
     Active Substance: ADALIMUMAB\ISOPROPYL ALCOHOL
     Indication: Inflammatory bowel disease
     Dosage: 40 MG, WEEKLY
     Route: 064

REACTIONS (7)
  - Foetal exposure during pregnancy [Recovering/Resolving]
  - Erythema of eyelid [Recovering/Resolving]
  - Psoriasis [Recovering/Resolving]
  - Rash pustular [Recovering/Resolving]
  - Seborrhoeic dermatitis [Recovering/Resolving]
  - Toxic skin eruption [Recovering/Resolving]
  - Xerosis [Recovering/Resolving]
